FAERS Safety Report 4489489-X (Version None)
Quarter: 2004Q4

REPORT INFORMATION
  Report Type: 
  Country: None (occurrence: None)
  Receive Date: 20041101
  Receipt Date: 20041021
  Transmission Date: 20050328
  Serious: Yes (Other)
  Sender: FDA-Public Use
  Company Number: 200418162US

PATIENT
  Age: 23 Year
  Sex: Female

DRUGS (2)
  1. KETEK [Suspect]
     Indication: UPPER RESPIRATORY TRACT INFECTION BACTERIAL
     Route: 048
     Dates: start: 20041021
  2. IBUPROFEN [Concomitant]

REACTIONS (4)
  - CHEST PAIN [None]
  - TACHYCARDIA [None]
  - VISION BLURRED [None]
  - VISUAL DISTURBANCE [None]
